FAERS Safety Report 7763447-1 (Version None)
Quarter: 2011Q3

REPORT INFORMATION
  Report Type: 
  Country: None (occurrence: None)
  Receive Date: 20110920
  Receipt Date: 20110912
  Transmission Date: 20111222
  Serious: Yes (Life-Threatening, Hospitalization, Disabling)
  Sender: FDA-Public Use
  Company Number: AT-CEPHALON-2011004963

PATIENT
  Sex: Male

DRUGS (2)
  1. TREANDA [Suspect]
     Indication: CHRONIC LYMPHOCYTIC LEUKAEMIA
     Route: 042
  2. RITUXIMAB [Suspect]
     Indication: CHRONIC LYMPHOCYTIC LEUKAEMIA

REACTIONS (2)
  - TUMOUR LYSIS SYNDROME [None]
  - AMAUROSIS [None]
